FAERS Safety Report 14188383 (Version 1)
Quarter: 2017Q4

REPORT INFORMATION
  Report Type: Spontaneous
  Country: US (occurrence: US)
  Receive Date: 20171114
  Receipt Date: 20171114
  Transmission Date: 20180321
  Serious: No
  Sender: FDA-Public Use
  Company Number: US-BAUSCH-BL-2017-020207

PATIENT
  Age: 70 Year
  Sex: Female
  Weight: 73.09 kg

DRUGS (3)
  1. OPCON-A [Suspect]
     Active Substance: NAPHAZOLINE HYDROCHLORIDE\PHENIRAMINE MALEATE
     Indication: OCULAR HYPERAEMIA
     Dosage: USED TWO OR THREE DAYS LATER
     Route: 047
     Dates: start: 201706, end: 20170625
  2. VITAMIN D [Concomitant]
     Active Substance: CHOLECALCIFEROL
     Indication: PRODUCT USED FOR UNKNOWN INDICATION
  3. OPCON-A [Suspect]
     Active Substance: NAPHAZOLINE HYDROCHLORIDE\PHENIRAMINE MALEATE
     Indication: EYE IRRIGATION
     Dosage: ONE DROP IN EACH EYE ONCE A DAY IN THE MORNING?STARTED ABOUT 10 DAYS AGO FROM THE DATE OF INITIAL RE
     Route: 047
     Dates: start: 201706

REACTIONS (2)
  - Eye irritation [Recovered/Resolved]
  - Drug ineffective [Recovered/Resolved]

NARRATIVE: CASE EVENT DATE: 201706
